FAERS Safety Report 4296944-4 (Version None)
Quarter: 2004Q1

REPORT INFORMATION
  Report Type: 
  Country: None (occurrence: None)
  Receive Date: 20040126
  Receipt Date: 20030827
  Transmission Date: 20041129
  Serious: No
  Sender: FDA-Public Use
  Company Number: USA030845660

PATIENT
  Age: 8 Year
  Sex: Female
  Weight: 20 kg

DRUGS (3)
  1. STRATTERA [Suspect]
     Indication: ATTENTION DEFICIT/HYPERACTIVITY DISORDER
     Dosage: 25 MG/DAY
     Dates: start: 20030601
  2. CONCERTA [Concomitant]
  3. CYPROHEPTADINE HCL [Concomitant]

REACTIONS (5)
  - DISTURBANCE IN ATTENTION [None]
  - DRUG INEFFECTIVE [None]
  - NERVOUSNESS [None]
  - SOMNOLENCE [None]
  - WEIGHT GAIN POOR [None]
